FAERS Safety Report 4579609-0 (Version None)
Quarter: 2005Q1

REPORT INFORMATION
  Report Type: 
  Country: None (occurrence: None)
  Receive Date: 20050210
  Receipt Date: 20050126
  Transmission Date: 20050727
  Serious: Yes (Death, Hospitalization)
  Sender: FDA-Public Use
  Company Number: 2004AL000508

PATIENT
  Age: 59 Year
  Sex: Female

DRUGS (12)
  1. LORAZEPAM [Suspect]
     Dosage: PO
     Route: 048
  2. NAPROXEN DELAYED-RELEASE TABLETS, 500 MG (PUREPAC) [Suspect]
     Dosage: PO
     Route: 048
  3. ACETAMINOPHEN AND TRAMADOL HCL [Suspect]
     Dosage: PO
     Route: 048
  4. BELLADONNA W/ERGOTAMINE/PHENOBARBITAL [Suspect]
     Dosage: PO
     Route: 048
  5. LOSARTAN POTASSIUM [Suspect]
     Dosage: PO
     Route: 048
  6. QUININE SULFATE [Suspect]
     Dosage: PO
     Route: 048
  7. LEVOTHYROXINE SODIUM [Suspect]
     Dosage: PO
     Route: 048
  8. HALOPERIDOL LACTATE [Suspect]
     Dosage: PO
     Route: 048
  9. PHENYTOIN [Suspect]
     Dosage: PO
     Route: 048
  10. SERTRALINE HCL [Suspect]
     Dosage: PO
     Route: 048
  11. OLANZAPINE [Suspect]
     Dosage: PO
     Route: 048
  12. HYDROXYZINE HCL [Suspect]
     Dosage: PO
     Route: 048

REACTIONS (16)
  - ACIDOSIS [None]
  - ANALGESIC DRUG LEVEL INCREASED [None]
  - ASPARTATE AMINOTRANSFERASE INCREASED [None]
  - BLOOD CREATINE PHOSPHOKINASE INCREASED [None]
  - BLOOD POTASSIUM INCREASED [None]
  - COMA [None]
  - COMPLETED SUICIDE [None]
  - HAEMODIALYSIS [None]
  - HYPOTENSION [None]
  - MENTAL STATUS CHANGES [None]
  - MIOSIS [None]
  - MULTI-ORGAN FAILURE [None]
  - OVERDOSE [None]
  - RENAL FAILURE [None]
  - THERAPEUTIC AGENT TOXICITY [None]
  - VOMITING [None]
